FAERS Safety Report 20829755 (Version 1)
Quarter: 2022Q2

REPORT INFORMATION
  Report Type: Spontaneous
  Country: US (occurrence: US)
  Receive Date: 20220513
  Receipt Date: 20220513
  Transmission Date: 20220720
  Serious: No
  Sender: FDA-Public Use
  Company Number: US-PFIZER INC-202200235273

PATIENT
  Age: 57 Year
  Sex: Female

DRUGS (4)
  1. PENICILLIN G BENZATHINE\PENICILLIN G PROCAINE [Suspect]
     Active Substance: PENICILLIN G BENZATHINE\PENICILLIN G PROCAINE
     Dosage: UNK
  2. VISTARIL [Concomitant]
     Active Substance: HYDROXYZINE PAMOATE
     Indication: Anxiety
     Dosage: 25 MG, 3X/DAY (TAKE 1 CAPSULE(S) BY MOUTH 3 TIMES A DAY PRN ANXIETY)
     Route: 048
     Dates: start: 20220113, end: 20220211
  3. ZOLOFT [Concomitant]
     Active Substance: SERTRALINE HYDROCHLORIDE
     Dosage: TAKE HALF PO QM X 7 DAYS, THEN INCREASE TO 1 TAB PO QAM
     Dates: start: 20220113, end: 20220211
  4. ARTHROTEC [Concomitant]
     Active Substance: DICLOFENAC SODIUM\MISOPROSTOL
     Indication: Pain
     Dosage: TAKE 1 TABLET(S) BY MOUTH 2 TIMES A DAY AS NEEDED SEVERE PAIN
     Route: 048
     Dates: start: 20220126, end: 2022

REACTIONS (1)
  - Drug hypersensitivity [Unknown]
